FAERS Safety Report 12839851 (Version 1)
Quarter: 2016Q4

REPORT INFORMATION
  Report Type: Spontaneous
  Country: IE (occurrence: IE)
  Receive Date: 20161012
  Receipt Date: 20161012
  Transmission Date: 20170207
  Serious: Yes (Other)
  Sender: FDA-Public Use
  Company Number: IE-PFIZER INC-2016452964

PATIENT
  Sex: Female

DRUGS (3)
  1. SUTENT [Suspect]
     Active Substance: SUNITINIB MALATE
     Dosage: 25, CYCLIC (2/1 AS SCHEDULE)
  2. SUTENT [Suspect]
     Active Substance: SUNITINIB MALATE
     Dosage: 25, CYCLIC (4/2 AS SCHEDULE)
  3. SUTENT [Suspect]
     Active Substance: SUNITINIB MALATE
     Indication: MEDULLARY THYROID CANCER
     Dosage: 37.5, CYCLIC (4/2 AS SCHEDULE)
     Dates: start: 20120615

REACTIONS (10)
  - Neutropenia [Unknown]
  - Vomiting [Unknown]
  - Epistaxis [Unknown]
  - Dysgeusia [Unknown]
  - Tumour pain [Unknown]
  - Influenza like illness [Unknown]
  - Nausea [Unknown]
  - Thrombocytopenia [Unknown]
  - Fatigue [Unknown]
  - Constipation [Unknown]
